FAERS Safety Report 11929954 (Version 1)
Quarter: 2016Q1

REPORT INFORMATION
  Report Type: Spontaneous
  Country: US (occurrence: None)
  Receive Date: 20160119
  Receipt Date: 20160119
  Transmission Date: 20160526
  Serious: Yes (Other)
  Sender: FDA-Public Use
  Company Number: None

PATIENT

DRUGS (1)
  1. XIGDUO XR [Suspect]
     Active Substance: DAPAGLIFLOZIN PROPANEDIOL\METFORMIN HYDROCHLORIDE
     Indication: DIABETES MELLITUS
     Dosage: 5 MG-1000MG 2 TABLETS BY MOUTH DAILY DAILY TABLET BY MOUTH
     Route: 048
     Dates: start: 20150225, end: 20150228

REACTIONS (3)
  - Vulvovaginal swelling [None]
  - Genital infection fungal [None]
  - Skin fissures [None]

NARRATIVE: CASE EVENT DATE: 20150225
